FAERS Safety Report 6550554-4 (Version None)
Quarter: 2010Q1

REPORT INFORMATION
  Report Type: 
  Country: None (occurrence: None)
  Receive Date: 20100125
  Receipt Date: 20100118
  Transmission Date: 20100710
  Serious: Yes (Hospitalization)
  Sender: FDA-Public Use
  Company Number: US-SANOFI-AVENTIS-2009SA011417

PATIENT
  Age: 63 Year
  Sex: Female

DRUGS (9)
  1. OXALIPLATIN [Suspect]
     Indication: COLORECTAL CANCER
     Route: 041
     Dates: start: 20091125, end: 20091125
  2. XELODA [Suspect]
     Indication: COLORECTAL CANCER
     Route: 048
     Dates: start: 20091125
  3. PREVACID [Concomitant]
  4. ATORVASTATIN CALCIUM [Concomitant]
  5. ADVAIR [Concomitant]
  6. FLONASE [Concomitant]
  7. TYLENOL PM [Concomitant]
  8. DAILY MULTIVITAMIN [Concomitant]
  9. ACTIVELLA [Concomitant]

REACTIONS (3)
  - CONFUSIONAL STATE [None]
  - ENTERITIS [None]
  - VOMITING [None]
